FAERS Safety Report 13616931 (Version 1)
Quarter: 2017Q2

REPORT INFORMATION
  Report Type: Spontaneous
  Country: US (occurrence: US)
  Receive Date: 20170606
  Receipt Date: 20170606
  Transmission Date: 20170830
  Serious: No
  Sender: FDA-Public Use
  Company Number: US-SA-2016SA132252

PATIENT
  Sex: Female

DRUGS (6)
  1. HUMALOG [Suspect]
     Active Substance: INSULIN LISPRO
     Route: 065
  2. SOLOSTAR [Concomitant]
     Active Substance: DEVICE
     Dosage: DOSE:10 UNIT(S)
     Route: 065
  3. LANTUS SOLOSTAR [Suspect]
     Active Substance: INSULIN GLARGINE
     Indication: TYPE 2 DIABETES MELLITUS
     Route: 065
  4. LANTUS SOLOSTAR [Suspect]
     Active Substance: INSULIN GLARGINE
     Indication: TYPE 2 DIABETES MELLITUS
     Dosage: DOSE:10 UNIT(S)
     Route: 065
  5. HUMALOG [Suspect]
     Active Substance: INSULIN LISPRO
     Route: 065
  6. SOLOSTAR [Concomitant]
     Active Substance: DEVICE
     Route: 065

REACTIONS (5)
  - Blood glucose increased [Unknown]
  - Ankle fracture [Unknown]
  - Arthropathy [Unknown]
  - Blood glucose fluctuation [Unknown]
  - Feeling abnormal [Unknown]
